FAERS Safety Report 23959618 (Version 1)
Quarter: 2024Q2

REPORT INFORMATION
  Report Type: Spontaneous
  Country: IE (occurrence: IE)
  Receive Date: 20240611
  Receipt Date: 20240611
  Transmission Date: 20240715
  Serious: Yes (Life-Threatening, Hospitalization, Disabling, Other)
  Sender: FDA-Public Use
  Company Number: IE-ADVANZ PHARMA-202405004472

PATIENT

DRUGS (16)
  1. PREDNISOLONE [Suspect]
     Active Substance: PREDNISOLONE
     Dosage: 30 MG, QD (^TAKE 6 TABLETS AS A SINGLE DOSE IN THE MORNING FOR 5 DAYS^ 6 DF, QD (IN MORNING))
     Route: 048
     Dates: start: 20210428
  2. FLUTICASONE FUROATE [Suspect]
     Active Substance: FLUTICASONE FUROATE
     Indication: Analgesic therapy
     Dosage: 27.5 UG
     Route: 045
     Dates: start: 20210816
  3. FLUTICASONE FUROATE [Suspect]
     Active Substance: FLUTICASONE FUROATE
     Dosage: 27.5 UG
     Route: 045
     Dates: start: 20210630
  4. FLUTICASONE FUROATE [Suspect]
     Active Substance: FLUTICASONE FUROATE
     Dosage: 27.5 UG (DOSAGE WAS REPORTED AS FOLLOWED IN ACCORDANCE WITH THE SUPPLIED ITEM PACKAGED LEAFLET. (10
     Route: 045
     Dates: start: 20201125, end: 20210816
  5. FLUTICASONE FUROATE [Suspect]
     Active Substance: FLUTICASONE FUROATE
     Dosage: 27.5 UG
     Route: 045
     Dates: start: 20210604
  6. FLUTICASONE FUROATE [Suspect]
     Active Substance: FLUTICASONE FUROATE
     Dosage: 27.5 UG
     Route: 045
     Dates: start: 20210428, end: 20210816
  7. FLUTICASONE FUROATE [Suspect]
     Active Substance: FLUTICASONE FUROATE
     Dosage: 27.5 UG
     Route: 045
     Dates: start: 20210311
  8. FLUTICASONE FUROATE [Suspect]
     Active Substance: FLUTICASONE FUROATE
     Dosage: 27.5 UG
     Route: 045
     Dates: start: 20210126
  9. METFORMIN [Suspect]
     Active Substance: METFORMIN HYDROCHLORIDE
     Indication: Type 2 diabetes mellitus
     Dosage: 1000 MG, QD (500 MG, BID)
  10. ACETAMINOPHEN\CAFFEINE\CODEINE PHOSPHATE [Suspect]
     Active Substance: ACETAMINOPHEN\CAFFEINE\CODEINE PHOSPHATE
     Indication: Analgesic therapy
     Dosage: UNK, PRN (TAKE TWO THREE TIMES A DAY WHEN REQUIRED.)
     Route: 048
     Dates: start: 20210828
  11. ACETAMINOPHEN\CAFFEINE\CODEINE PHOSPHATE [Suspect]
     Active Substance: ACETAMINOPHEN\CAFFEINE\CODEINE PHOSPHATE
     Dosage: UNK, PRN (TAKE TWO THREE TIMES A DAY WHEN REQUIRED.)
     Route: 048
     Dates: start: 20210311
  12. ACETAMINOPHEN\CAFFEINE\CODEINE PHOSPHATE [Suspect]
     Active Substance: ACETAMINOPHEN\CAFFEINE\CODEINE PHOSPHATE
     Dosage: UNK, PRN (TAKE TWO THREE TIMES A DAY WHEN REQUIRED.)
     Route: 048
     Dates: start: 20211001
  13. ACETAMINOPHEN\CAFFEINE\CODEINE PHOSPHATE [Suspect]
     Active Substance: ACETAMINOPHEN\CAFFEINE\CODEINE PHOSPHATE
     Dosage: UNK, PRN (TAKE TWO THREE TIMES A DAY WHEN REQUIRED.)
     Route: 048
     Dates: start: 20210706
  14. ACETAMINOPHEN\CAFFEINE\CODEINE PHOSPHATE [Suspect]
     Active Substance: ACETAMINOPHEN\CAFFEINE\CODEINE PHOSPHATE
     Dosage: UNK, PRN (TAKE TWO THREE TIMES A DAY WHEN REQUIRED.)
     Route: 048
     Dates: start: 20210408
  15. ACETAMINOPHEN\CAFFEINE\CODEINE PHOSPHATE [Suspect]
     Active Substance: ACETAMINOPHEN\CAFFEINE\CODEINE PHOSPHATE
     Dosage: UNK, PRN (TAKEN TWO THREE TIMES A DAY WHEN REQUIRED.)
     Route: 048
     Dates: start: 20201125
  16. ACETAMINOPHEN\CAFFEINE\CODEINE PHOSPHATE [Suspect]
     Active Substance: ACETAMINOPHEN\CAFFEINE\CODEINE PHOSPHATE
     Dosage: UNK, PRN (TAKE TWO THREE TIMES A DAY WHEN REQUIRED.)
     Route: 048
     Dates: start: 20210217

REACTIONS (10)
  - Type 2 diabetes mellitus [Not Recovered/Not Resolved]
  - Polydipsia [Unknown]
  - Blood glucose increased [Unknown]
  - Paraesthesia [Unknown]
  - Feeling hot [Unknown]
  - Food craving [Unknown]
  - Malaise [Unknown]
  - Hyperhidrosis [Unknown]
  - Fungal infection [Unknown]
  - Nausea [Unknown]

NARRATIVE: CASE EVENT DATE: 20210801
